FAERS Safety Report 9689111 (Version 1)
Quarter: 2013Q4

REPORT INFORMATION
  Report Type: Report from Study
  Country: US (occurrence: US)
  Receive Date: 20131114
  Receipt Date: 20131114
  Transmission Date: 20140711
  Serious: No
  Sender: FDA-Public Use
  Company Number: US-ASTRAZENECA-2013SE81362

PATIENT
  Age: 64 Year
  Sex: Female
  Weight: 76.2 kg

DRUGS (7)
  1. NEXIUM [Suspect]
     Indication: ABDOMINAL PAIN UPPER
     Route: 048
     Dates: start: 201302
  2. LISINOPRIL [Suspect]
     Route: 048
  3. HUMULOG [Concomitant]
     Indication: DIABETES MELLITUS
     Dosage: 150 UNITS/DAY DAILY
     Route: 050
  4. XIFAXAN [Concomitant]
     Indication: LIVER DISORDER
     Route: 048
  5. LACTULOSE [Concomitant]
     Indication: LIVER DISORDER
     Dosage: TABESPOON DAILY
     Route: 048
  6. GABAPENTIN [Concomitant]
     Route: 048
  7. PROPRANOL [Concomitant]
     Route: 048

REACTIONS (3)
  - Abdominal distension [Unknown]
  - Off label use [Unknown]
  - Drug dose omission [Unknown]
